FAERS Safety Report 17876744 (Version 1)
Quarter: 2020Q2

REPORT INFORMATION
  Report Type: Spontaneous
  Country: US (occurrence: US)
  Receive Date: 20200609
  Receipt Date: 20200609
  Transmission Date: 20200714
  Serious: No
  Sender: FDA-Public Use
  Company Number: US-SA-2020SA145842

PATIENT

DRUGS (15)
  1. DESONIDE. [Concomitant]
     Active Substance: DESONIDE
  2. EPINEPHRINE. [Concomitant]
     Active Substance: EPINEPHRINE
  3. LEVOFLOXACIN. [Concomitant]
     Active Substance: LEVOFLOXACIN
  4. MOMETASONE FUROATE. [Concomitant]
     Active Substance: MOMETASONE FUROATE
  5. OLOPATADINE HCL [Concomitant]
     Active Substance: OLOPATADINE HYDROCHLORIDE
  6. SAXENDA [Concomitant]
     Active Substance: LIRAGLUTIDE
  7. ADVIL [IBUPROFEN] [Concomitant]
     Active Substance: IBUPROFEN
  8. MONTELUKAST SODIUM. [Concomitant]
     Active Substance: MONTELUKAST SODIUM
  9. ALBUTEROL SULFATE HFA [Concomitant]
     Active Substance: ALBUTEROL SULFATE
  10. METHYLPREDNISOLONE. [Concomitant]
     Active Substance: METHYLPREDNISOLONE
  11. ALLERGY RELIEF [CETIRIZINE HYDROCHLORIDE] [Concomitant]
  12. DUPIXENT [Suspect]
     Active Substance: DUPILUMAB
     Indication: DERMATITIS ATOPIC
     Dosage: 300 MG, QOW
     Route: 058
  13. TYLENOL [Concomitant]
     Active Substance: ACETAMINOPHEN
  14. EUCRISA [Concomitant]
     Active Substance: CRISABOROLE
  15. TRETINOIN. [Concomitant]
     Active Substance: TRETINOIN
     Dosage: UNK

REACTIONS (1)
  - Pruritus [Unknown]

NARRATIVE: CASE EVENT DATE: 20200601
